FAERS Safety Report 5442543-8 (Version None)
Quarter: 2007Q3

REPORT INFORMATION
  Report Type: 
  Country: None (occurrence: None)
  Receive Date: 20070830
  Receipt Date: 20070820
  Transmission Date: 20080115
  Serious: Yes (Other)
  Sender: FDA-Public Use
  Company Number: 017376

PATIENT
  Age: 54 Year
  Sex: Female

DRUGS (6)
  1. ADDERALL 10 [Suspect]
     Indication: ATTENTION DEFICIT/HYPERACTIVITY DISORDER
     Dosage: 10 MG, ORAL
     Route: 048
     Dates: end: 20070601
  2. PEGASYS [Suspect]
     Indication: HEPATITIS C VIRUS
     Dosage: 180 UG, 1/WEEK, SUBCUTANEOUS
     Route: 058
     Dates: start: 20070608
  3. RIBAVIRIN [Suspect]
     Indication: HEPATITIS VIRAL
     Dosage: 600 MG, BID
     Dates: start: 20070608
  4. TOPROL-XL [Concomitant]
  5. HYDROCHLORZIDE [Concomitant]
  6. TRILEPTAL [Concomitant]

REACTIONS (20)
  - ABDOMINAL PAIN [None]
  - AFFECT LABILITY [None]
  - ALOPECIA [None]
  - ANGER [None]
  - ANXIETY [None]
  - ARTHROPOD BITE [None]
  - DEHYDRATION [None]
  - DEPRESSION [None]
  - DIARRHOEA [None]
  - DISTURBANCE IN ATTENTION [None]
  - DIZZINESS [None]
  - DRY EYE [None]
  - FATIGUE [None]
  - INSOMNIA [None]
  - MUSCLE ATROPHY [None]
  - NAUSEA [None]
  - PAIN [None]
  - PALPITATIONS [None]
  - POLYP [None]
  - WEIGHT DECREASED [None]
